FAERS Safety Report 18043329 (Version 1)
Quarter: 2020Q3

REPORT INFORMATION
  Report Type: Report from Study
  Country: US (occurrence: US)
  Receive Date: 20200720
  Receipt Date: 20200720
  Transmission Date: 20201103
  Serious: Yes (Death, Life-Threatening, Other)
  Sender: FDA-Public Use
  Company Number: US-ASTELLAS-2017US016813

PATIENT
  Age: 77 Year
  Sex: Male

DRUGS (8)
  1. SCOPOLAMINE HBR [Concomitant]
     Active Substance: SCOPOLAMINE
     Indication: PRODUCT USED FOR UNKNOWN INDICATION
     Dosage: 1.5 MG, EVERY 72 HOURS
     Route: 062
  2. LORAZEPAM. [Concomitant]
     Active Substance: LORAZEPAM
     Indication: PRODUCT USED FOR UNKNOWN INDICATION
     Dosage: 1 MG, EVERY 2 HOURS, AS NEEDED
     Route: 042
  3. LORAZEPAM. [Concomitant]
     Active Substance: LORAZEPAM
     Dosage: 2 MG, EVERY 1 HOURS, AS NEEDED
     Route: 042
  4. MORPHINE SULFATE. [Concomitant]
     Active Substance: MORPHINE SULFATE
     Indication: PRODUCT USED FOR UNKNOWN INDICATION
     Dosage: 2 MG, EVERY 3 HOURS, AS NEEDED
     Route: 042
  5. ASP2215 [Suspect]
     Active Substance: GILTERITINIB
     Indication: ACUTE MYELOID LEUKAEMIA
     Route: 048
     Dates: start: 20170217, end: 20170326
  6. IDARUBICIN [Suspect]
     Active Substance: IDARUBICIN
     Indication: ACUTE MYELOID LEUKAEMIA
     Route: 042
     Dates: start: 20170214, end: 20170316
  7. CYTARABINE. [Suspect]
     Active Substance: CYTARABINE
     Indication: ACUTE MYELOID LEUKAEMIA
     Route: 048
     Dates: start: 20170214, end: 20170312
  8. MORPHINE SULFATE. [Concomitant]
     Active Substance: MORPHINE SULFATE
     Dosage: 4 MG, EVERY 2 HOURS, AS NEEDED
     Route: 042

REACTIONS (5)
  - Febrile neutropenia [Recovered/Resolved]
  - Delirium [Not Recovered/Not Resolved]
  - Sepsis [Fatal]
  - Febrile neutropenia [Recovered/Resolved]
  - Febrile neutropenia [Recovered/Resolved]

NARRATIVE: CASE EVENT DATE: 20170215
